FAERS Safety Report 22608586 (Version 4)
Quarter: 2023Q2

REPORT INFORMATION
  Report Type: Spontaneous
  Country: US (occurrence: US)
  Receive Date: 20230616
  Receipt Date: 20230628
  Transmission Date: 20230722
  Serious: No
  Sender: FDA-Public Use
  Company Number: US-UNITED THERAPEUTICS-UNT-2023-016398

PATIENT
  Age: 54 Year
  Sex: Female
  Weight: 55.782 kg

DRUGS (2)
  1. REMODULIN [Suspect]
     Active Substance: TREPROSTINIL
     Indication: Pulmonary arterial hypertension
     Dosage: 0.011 ?G/KG, CONTINUING (SELF FILL WITH 3 ML PER CASSETTE WITH RATE 39 MCL PER HOUR)
     Route: 058
     Dates: start: 202306
  2. REMODULIN [Suspect]
     Active Substance: TREPROSTINIL
     Dosage: UNK, CONTINUING
     Route: 058
     Dates: start: 20230605

REACTIONS (14)
  - Pain in jaw [Unknown]
  - Diarrhoea [Unknown]
  - Device wireless communication issue [Recovered/Resolved]
  - Heart rate increased [Recovered/Resolved]
  - Chest discomfort [Recovered/Resolved]
  - Dyspnoea [Recovered/Resolved]
  - Fatigue [Unknown]
  - Device dislocation [Unknown]
  - Catheter site related reaction [Unknown]
  - Infusion site pain [Unknown]
  - Memory impairment [Unknown]
  - Pain [Not Recovered/Not Resolved]
  - Infusion site erythema [Unknown]
  - Device maintenance issue [Unknown]

NARRATIVE: CASE EVENT DATE: 20030601
